FAERS Safety Report 5952055-0 (Version None)
Quarter: 2008Q4

REPORT INFORMATION
  Report Type: 
  Country: None (occurrence: None)
  Receive Date: 20081113
  Receipt Date: 20080206
  Transmission Date: 20090506
  Serious: No
  Sender: FDA-Public Use
  Company Number: A0707810A

PATIENT

DRUGS (1)
  1. COREG [Suspect]
     Dosage: 100MG TWICE PER DAY
     Route: 048

REACTIONS (1)
  - EJECTION FRACTION DECREASED [None]
